FAERS Safety Report 9143855 (Version 2)
Quarter: 2013Q1

REPORT INFORMATION
  Report Type: Spontaneous
  Country: DE (occurrence: DE)
  Receive Date: 20130306
  Receipt Date: 20130314
  Transmission Date: 20140127
  Serious: Yes (Other)
  Sender: FDA-Public Use
  Company Number: CHPA2013DE003964

PATIENT
  Age: 66 Year
  Sex: Female

DRUGS (3)
  1. FENISTIL [Suspect]
     Indication: DERMATITIS ALLERGIC
     Dosage: 4 MG, ONCE/SINGLE
     Route: 042
     Dates: start: 20130225, end: 20130225
  2. FENISTIL [Suspect]
     Indication: RASH PRURITIC
  3. PREDNISOLONE [Suspect]
     Dosage: 200 MG, UNK
     Route: 042
     Dates: start: 201302

REACTIONS (4)
  - Blood pressure systolic increased [Recovered/Resolved]
  - Feeling hot [Recovered/Resolved]
  - Muscle twitching [Recovered/Resolved]
  - Muscle spasms [Recovered/Resolved]
